FAERS Safety Report 5894069-5 (Version None)
Quarter: 2008Q3

REPORT INFORMATION
  Report Type: 
  Country: None (occurrence: None)
  Receive Date: 20080923
  Receipt Date: 20080919
  Transmission Date: 20090109
  Serious: Yes (Death, Other)
  Sender: FDA-Public Use
  Company Number: US-GILEAD-2008-0017805

PATIENT
  Sex: Male
  Weight: 46.308 kg

DRUGS (14)
  1. TRUVADA [Suspect]
     Indication: HIV INFECTION
     Dates: start: 20080411, end: 20080718
  2. PREZISTA [Concomitant]
     Indication: HIV INFECTION
     Dates: start: 20080411
  3. NORVIR [Concomitant]
     Indication: HIV INFECTION
     Dates: start: 20080411
  4. ISENTRESS [Concomitant]
     Dates: start: 20080411
  5. GABAPENTIN [Concomitant]
     Dates: start: 20080411
  6. PROSCAR [Concomitant]
     Dates: start: 20080411
  7. FLOMAX [Concomitant]
     Dates: start: 20080411
  8. TRICOR [Concomitant]
     Dates: start: 20080411
  9. ACTOS [Concomitant]
     Dates: start: 20080411
  10. LIPITOR [Concomitant]
     Dates: start: 20080411
  11. M.V.I. [Concomitant]
     Dates: start: 20080411
  12. GLYBURIDE [Concomitant]
     Dates: start: 20080411
  13. KADIAN [Concomitant]
     Dates: start: 20080411
  14. VALTREX [Concomitant]
     Dates: start: 20080411

REACTIONS (3)
  - FANCONI SYNDROME ACQUIRED [None]
  - GLOMERULAR FILTRATION RATE DECREASED [None]
  - PNEUMONIA [None]
